FAERS Safety Report 5886601-2 (Version None)
Quarter: 2008Q3

REPORT INFORMATION
  Report Type: 
  Country: None (occurrence: None)
  Receive Date: 20080917
  Receipt Date: 20080908
  Transmission Date: 20090109
  Serious: Yes (Life-Threatening)
  Sender: FDA-Public Use
  Company Number: US-BAYER-200832997NA

PATIENT
  Age: 73 Year
  Sex: Female

DRUGS (1)
  1. ULTRAVIST 300 [Suspect]
     Indication: COMPUTERISED TOMOGRAM ABDOMEN
     Dosage: TOTAL DAILY DOSE: 40 ML  UNIT DOSE: 150 ML
     Route: 042
     Dates: start: 20080905, end: 20080905

REACTIONS (4)
  - ANGINA PECTORIS [None]
  - DEPRESSED LEVEL OF CONSCIOUSNESS [None]
  - HYPOAESTHESIA ORAL [None]
  - MUSCLE SPASMS [None]
